FAERS Safety Report 18232569 (Version 1)
Quarter: 2020Q3

REPORT INFORMATION
  Report Type: Spontaneous
  Country: US (occurrence: US)
  Receive Date: 20200904
  Receipt Date: 20200904
  Transmission Date: 20201103
  Serious: No
  Sender: FDA-Public Use
  Company Number: US-PFIZER INC-2020341386

PATIENT
  Age: 79 Year
  Sex: Female
  Weight: 56.24 kg

DRUGS (9)
  1. HUMIRA [Suspect]
     Active Substance: ADALIMUMAB
     Indication: RHEUMATOID ARTHRITIS
     Dosage: UNK, WEEKLY  (1 IN 1 WEEK)
     Route: 058
     Dates: start: 2003, end: 2018
  2. MECLIZINE [Concomitant]
     Active Substance: MECLIZINE HYDROCHLORIDE
     Indication: DIZZINESS
     Dosage: UNK
  3. XELJANZ [Suspect]
     Active Substance: TOFACITINIB CITRATE
     Dosage: UNK
  4. OXYBUTYNIN. [Concomitant]
     Active Substance: OXYBUTYNIN CHLORIDE
     Indication: RENAL DISORDER
     Dosage: UNK
  5. VALSARTAN. [Concomitant]
     Active Substance: VALSARTAN
     Indication: BLOOD CHOLESTEROL ABNORMAL
     Dosage: UNK
  6. HUMIRA [Suspect]
     Active Substance: ADALIMUMAB
     Dosage: UNK (1 IN 2 WEEK)
     Route: 058
     Dates: start: 20200804
  7. BISOPROLOL [Concomitant]
     Active Substance: BISOPROLOL
     Dosage: UNK
  8. AMLODIPINE [Concomitant]
     Active Substance: AMLODIPINE BESYLATE
     Indication: HYPERTENSION
     Dosage: UNK
  9. RESTASIS [Concomitant]
     Active Substance: CYCLOSPORINE
     Indication: EYE DISORDER
     Dosage: UNK

REACTIONS (4)
  - General physical health deterioration [Unknown]
  - Pruritus allergic [Unknown]
  - Arthralgia [Recovered/Resolved]
  - Drug hypersensitivity [Unknown]

NARRATIVE: CASE EVENT DATE: 202008
